FAERS Safety Report 11792726 (Version 2)
Quarter: 2015Q4

REPORT INFORMATION
  Report Type: Spontaneous
  Country: CA (occurrence: None)
  Receive Date: 20151130
  Receipt Date: 20151207
  Transmission Date: 20160305
  Serious: No
  Sender: FDA-Public Use
  Company Number: CA2015K7278LIT

PATIENT
  Age: 58 Year
  Sex: Male

DRUGS (5)
  1. ESOMEPRAZOLE WORLD (ESOMEPRAZOLE) UNKNOWN [Suspect]
     Active Substance: ESOMEPRAZOLE
     Route: 003
  2. LANSOPRAZOLE WORLD (LANSOPRAZOLE) [Suspect]
     Active Substance: LANSOPRAZOLE
     Route: 003
  3. OMEPRAZOLE WORLD (OMEPRAZOLE) UNKNOWN [Suspect]
     Active Substance: OMEPRAZOLE
     Route: 003
  4. PANTOPRAZOLE WORLD (PANTOPRAZOLE) UNKNOWN [Suspect]
     Active Substance: PANTOPRAZOLE SODIUM
     Route: 003
  5. DEXLANSOPRAZOLE [Suspect]
     Active Substance: DEXLANSOPRAZOLE
     Route: 003

REACTIONS (2)
  - Occupational exposure to product [None]
  - Dermatitis contact [None]
